FAERS Safety Report 26181014 (Version 1)
Quarter: 2025Q4

REPORT INFORMATION
  Report Type: Spontaneous
  Country: US (occurrence: US)
  Receive Date: 20251221
  Receipt Date: 20251221
  Transmission Date: 20260117
  Serious: Yes (Other)
  Sender: BLUEPRINT MEDICINES
  Company Number: US-Blueprint Medicines Corporation-2025-AER-02718

PATIENT
  Age: 56 Year
  Sex: Female

DRUGS (1)
  1. AYVAKIT [Suspect]
     Active Substance: AVAPRITINIB
     Indication: Systemic mastocytosis
     Route: 065
     Dates: start: 20251204

REACTIONS (11)
  - Systemic mastocytosis [Unknown]
  - Condition aggravated [Unknown]
  - Diarrhoea [Unknown]
  - Tremor [Unknown]
  - Flushing [Unknown]
  - Fatigue [Unknown]
  - Epistaxis [Unknown]
  - Pain of skin [Unknown]
  - Pyrexia [Unknown]
  - Heart rate decreased [Unknown]
  - Chills [Unknown]

NARRATIVE: CASE EVENT DATE: 20251211
